FAERS Safety Report 7455350-1 (Version None)
Quarter: 2011Q2

REPORT INFORMATION
  Report Type: 
  Country: None (occurrence: None)
  Receive Date: 20110503
  Receipt Date: 20110426
  Transmission Date: 20111010
  Serious: Yes (Hospitalization)
  Sender: FDA-Public Use
  Company Number: GB-MILLENNIUM PHARMACEUTICALS, INC.-2011-01727

PATIENT

DRUGS (11)
  1. LEVOTHYROXINE SODIUM [Concomitant]
     Indication: THYROID HORMONE REPLACEMENT THERAPY
     Dosage: 50 MG, BID
     Route: 048
  2. ALFACALCIDOL [Concomitant]
     Indication: VITAMIN D
     Dosage: 500 NG, QD
     Route: 048
  3. CO-AMOXICLAV                       /00756801/ [Concomitant]
     Dosage: 625 MG, TID
     Route: 048
  4. FLUCONAZOLE [Concomitant]
     Indication: ANTIFUNGAL TREATMENT
     Dosage: 50 MG, BID
     Route: 048
  5. DOXORUBICIN [Suspect]
     Indication: MULTIPLE MYELOMA
     Dosage: 9 MG/M2, CYCLIC
     Route: 065
     Dates: start: 20110131
  6. DEXAMETHASONE [Suspect]
     Indication: MULTIPLE MYELOMA
     Dosage: UNK
     Route: 065
  7. ATENOLOL [Concomitant]
     Indication: HYPERTENSION
     Dosage: 50 MG, QD
     Route: 048
  8. VELCADE [Suspect]
     Indication: MULTIPLE MYELOMA
     Dosage: 1 MG/M2, CYCLIC
     Route: 065
     Dates: start: 20110131
  9. RANITIDINE [Concomitant]
     Indication: PEPTIC ULCER
     Dosage: 150 MG, QD
     Route: 048
  10. AMLODIPINE [Concomitant]
     Indication: HYPERTENSION
     Dosage: 10 MG, QD
     Route: 048
  11. SIMVASTATIN [Concomitant]
     Indication: HYPERCHOLESTEROLAEMIA
     Dosage: 40 MG, QD
     Route: 048

REACTIONS (2)
  - LETHARGY [None]
  - DYSPNOEA [None]
